FAERS Safety Report 14682969 (Version 1)
Quarter: 2018Q1

REPORT INFORMATION
  Report Type: Spontaneous
  Country: US (occurrence: US)
  Receive Date: 20180327
  Receipt Date: 20180327
  Transmission Date: 20180509
  Serious: Yes (Hospitalization, Other)
  Sender: FDA-Public Use
  Company Number: US-ABBVIE-18S-163-2298645-00

PATIENT
  Sex: Male

DRUGS (1)
  1. ANDROGEL [Suspect]
     Active Substance: TESTOSTERONE
     Indication: ANDROGEN REPLACEMENT THERAPY
     Route: 061
     Dates: start: 201302, end: 201401

REACTIONS (5)
  - Infarction [Unknown]
  - Hemiparesis [Unknown]
  - Cerebrovascular accident [Unknown]
  - Cerebrovascular accident [Unknown]
  - Dysarthria [Unknown]

NARRATIVE: CASE EVENT DATE: 20140120
